FAERS Safety Report 10146140 (Version 1)
Quarter: 2014Q2

REPORT INFORMATION
  Report Type: Spontaneous
  Country: US (occurrence: None)
  Receive Date: 20140430
  Receipt Date: 20140430
  Transmission Date: 20141212
  Serious: Yes (Hospitalization)
  Sender: FDA-Public Use
  Company Number: None

PATIENT
  Age: 34 Year
  Sex: Male
  Weight: 75 kg

DRUGS (9)
  1. DAPTOMYCIN [Suspect]
     Indication: STREPTOCOCCAL BACTERAEMIA
     Route: 042
     Dates: start: 20140310, end: 20140319
  2. PEPCID [Concomitant]
  3. INSULIN [Concomitant]
  4. LEVETIRACETAM [Concomitant]
  5. METOPROLOL [Concomitant]
  6. OLANZAPINE [Concomitant]
  7. LOVAZA [Concomitant]
  8. RISPERIDONE [Concomitant]
  9. SERTRALINE [Concomitant]

REACTIONS (1)
  - Rhabdomyolysis [None]
